FAERS Safety Report 9406034 (Version 1)
Quarter: 2013Q3

REPORT INFORMATION
  Report Type: Spontaneous
  Country: US (occurrence: US)
  Receive Date: 20130717
  Receipt Date: 20130717
  Transmission Date: 20140515
  Serious: No
  Sender: FDA-Public Use
  Company Number: US-009507513-1307USA000966

PATIENT
  Age: 22 Year
  Sex: Female

DRUGS (1)
  1. NEXPLANON [Suspect]
     Indication: MENSTRUATION IRREGULAR
     Dosage: 1 ROD FOR 3 YEARS
     Route: 059
     Dates: start: 20130618

REACTIONS (1)
  - Nausea [Unknown]
